FAERS Safety Report 6767256-1 (Version None)
Quarter: 2010Q2

REPORT INFORMATION
  Report Type: 
  Country: None (occurrence: None)
  Receive Date: 20100611
  Receipt Date: 20100611
  Transmission Date: 20101027
  Serious: Yes (Death)
  Sender: FDA-Public Use
  Company Number: None

PATIENT
  Sex: Male
  Weight: 72 kg

DRUGS (8)
  1. ABRAXANE [Suspect]
  2. VANDETANIB [Suspect]
  3. METFORMIN [Concomitant]
  4. CREON [Concomitant]
  5. BENEFIBER [Concomitant]
  6. IMODIUM [Concomitant]
  7. VICODIN [Concomitant]
  8. PROZAC [Concomitant]

REACTIONS (3)
  - CARDIO-RESPIRATORY ARREST [None]
  - COLLAPSE OF LUNG [None]
  - PLEURAL EFFUSION [None]
